FAERS Safety Report 5882661-3 (Version None)
Quarter: 2008Q3

REPORT INFORMATION
  Report Type: 
  Country: None (occurrence: None)
  Receive Date: 20080913
  Receipt Date: 20080811
  Transmission Date: 20090109
  Serious: No
  Sender: FDA-Public Use
  Company Number: US-ABBOTT-08P-163-0470349-00

PATIENT
  Sex: Female

DRUGS (5)
  1. HUMIRA [Suspect]
     Indication: COLITIS ULCERATIVE
     Route: 050
     Dates: start: 20080726, end: 20080726
  2. HUMIRA [Suspect]
     Route: 050
     Dates: start: 20080808, end: 20080808
  3. HUMIRA [Suspect]
     Route: 058
  4. ANOVLAR [Concomitant]
     Indication: MENSTRUATION IRREGULAR
  5. VITAMIN TAB [Concomitant]
     Indication: VITAMIN SUPPLEMENTATION

REACTIONS (6)
  - ACCIDENTAL EXPOSURE [None]
  - DEFAECATION URGENCY [None]
  - FREQUENT BOWEL MOVEMENTS [None]
  - GASTROINTESTINAL PAIN [None]
  - LARGE INTESTINAL HAEMORRHAGE [None]
  - MALAISE [None]
